FAERS Safety Report 21729121 (Version 1)
Quarter: 2022Q4

REPORT INFORMATION
  Report Type: Report from Study
  Country: BR (occurrence: BR)
  Receive Date: 20221214
  Receipt Date: 20221214
  Transmission Date: 20230112
  Serious: Yes (Other)
  Sender: FDA-Public Use
  Company Number: BR-JNJFOC-20221215132

PATIENT
  Sex: Female
  Weight: 66 kg

DRUGS (1)
  1. INFLIXIMAB [Suspect]
     Active Substance: INFLIXIMAB
     Indication: Crohn^s disease
     Route: 041
     Dates: start: 2014

REACTIONS (9)
  - Suicidal ideation [Recovering/Resolving]
  - Intestinal resection [Unknown]
  - Depression [Recovering/Resolving]
  - Anxiety [Recovering/Resolving]
  - Weight decreased [Recovered/Resolved]
  - Anosmia [Unknown]
  - Arthralgia [Unknown]
  - Pruritus [Unknown]
  - COVID-19 [Unknown]
